FAERS Safety Report 6025647-0 (Version None)
Quarter: 2008Q4

REPORT INFORMATION
  Report Type: 
  Country: None (occurrence: None)
  Receive Date: 20081231
  Receipt Date: 20081224
  Transmission Date: 20090506
  Serious: Yes (Hospitalization)
  Sender: FDA-Public Use
  Company Number: JP-B.I. PHARMACEUTICALS,INC./RIDGEFIELD-2008-BP-16015NB

PATIENT
  Sex: Male
  Weight: 58 kg

DRUGS (2)
  1. BI-SIFROL TABLETS [Suspect]
     Indication: PARKINSON'S DISEASE
     Dosage: 3MG
     Route: 048
     Dates: start: 20060620, end: 20070807
  2. SYMMETREL [Concomitant]
     Indication: PARKINSON'S DISEASE
     Dosage: 100MG
     Route: 048
     Dates: start: 20070206, end: 20070824

REACTIONS (1)
  - CAMPTODACTYLY ACQUIRED [None]
